FAERS Safety Report 16527748 (Version 1)
Quarter: 2019Q3

REPORT INFORMATION
  Report Type: Spontaneous
  Country: US (occurrence: US)
  Receive Date: 20190703
  Receipt Date: 20190703
  Transmission Date: 20191004
  Serious: Yes (Other)
  Sender: FDA-Public Use
  Company Number: PHEH2019US027239

PATIENT
  Sex: Female

DRUGS (1)
  1. VIVELLE-DOT [Suspect]
     Active Substance: ESTRADIOL
     Indication: PRODUCT USED FOR UNKNOWN INDICATION
     Dosage: 0.075 OT, UNK
     Route: 062
     Dates: start: 2008

REACTIONS (5)
  - Skin cancer [Unknown]
  - Weight increased [Unknown]
  - Product adhesion issue [Unknown]
  - Underdose [Unknown]
  - Product physical issue [Unknown]
